FAERS Safety Report 20487148 (Version 4)
Quarter: 2022Q1

REPORT INFORMATION
  Report Type: Spontaneous
  Country: JP (occurrence: JP)
  Receive Date: 20220217
  Receipt Date: 20220321
  Transmission Date: 20220423
  Serious: Yes (Hospitalization)
  Sender: FDA-Public Use
  Company Number: JP-JNJFOC-20220230569

PATIENT
  Age: 54 Year
  Sex: Female

DRUGS (12)
  1. OPSUMIT [Suspect]
     Active Substance: MACITENTAN
     Indication: Pulmonary arterial hypertension
     Route: 048
     Dates: start: 202109
  2. OPSUMIT [Suspect]
     Active Substance: MACITENTAN
     Indication: Pulmonary arterial hypertension
  3. UPTRAVI [Suspect]
     Active Substance: SELEXIPAG
     Indication: Pulmonary arterial hypertension
     Route: 048
     Dates: start: 20211117, end: 2021
  4. UPTRAVI [Suspect]
     Active Substance: SELEXIPAG
     Indication: Pulmonary arterial hypertension
     Route: 048
     Dates: start: 2021
  5. UPTRAVI [Suspect]
     Active Substance: SELEXIPAG
     Route: 048
  6. UPTRAVI [Suspect]
     Active Substance: SELEXIPAG
     Route: 048
     Dates: start: 2021
  7. ADCIRCA [Concomitant]
     Active Substance: TADALAFIL
     Route: 048
  8. ADEMPAS [Concomitant]
     Active Substance: RIOCIGUAT
     Indication: Pulmonary arterial hypertension
     Dosage: DOSE UNKNOWN
     Route: 048
     Dates: start: 202108, end: 2021
  9. ADEMPAS [Concomitant]
     Active Substance: RIOCIGUAT
     Route: 048
     Dates: start: 202110
  10. TRIAZOLAM [Concomitant]
     Active Substance: TRIAZOLAM
  11. RISPERIDONE [Concomitant]
     Active Substance: RISPERIDONE
  12. ETHYL LOFLAZEPATE [Concomitant]
     Active Substance: ETHYL LOFLAZEPATE

REACTIONS (1)
  - Pulmonary oedema [Recovering/Resolving]

NARRATIVE: CASE EVENT DATE: 20220128
